FAERS Safety Report 10174339 (Version 1)
Quarter: 2014Q2

REPORT INFORMATION
  Report Type: Spontaneous
  Country: US (occurrence: None)
  Receive Date: 20140416
  Receipt Date: 20140416
  Transmission Date: 20141212
  Serious: Yes (Hospitalization)
  Sender: FDA-Public Use
  Company Number: 163-POMAL-13120523

PATIENT
  Age: 82 Year
  Sex: Female
  Weight: 52.2 kg

DRUGS (11)
  1. POMALYST (POMALIDOMIDE) (CAPSULES) [Suspect]
     Indication: PLASMA CELL MYELOMA
     Dosage: 21 IN 21 D
     Route: 048
     Dates: start: 201308
  2. CENTRUM SILVER (CENTRUM SILVER) (CHEWABLE TABLET) [Concomitant]
  3. SINGULAIR (MONTELUKAST SODIUM) (TABLETS) [Concomitant]
  4. ZOLOFT (SERTRALINE HYDROCHLORIDE) (TABLETS) [Concomitant]
  5. TRAMADOL HCL (TRAMADOL HYDROCHLORIDE) (TABLETS) [Concomitant]
  6. HYDROCHLOROTHIAZIDE (HYDROCHLOROTHIAZIDE) (UNKNOWN) [Concomitant]
  7. DIAZEPAM (DIAZEPAM) (TABLETS) [Concomitant]
  8. CALCIUM (CALCIUM) (TABLETS) [Concomitant]
  9. CLARITIN (LORATADINE) (TABLETS) [Concomitant]
  10. FISH OIL (FISH OIL) (UNKNOWN) [Concomitant]
  11. FLUDROCORTISONE (FLUDROCORTISONE) (UNKNOWN) [Concomitant]

REACTIONS (1)
  - Dehydration [None]
